FAERS Safety Report 7817613-7 (Version None)
Quarter: 2011Q4

REPORT INFORMATION
  Report Type: 
  Country: None (occurrence: None)
  Receive Date: 20111017
  Receipt Date: 20111012
  Transmission Date: 20120403
  Serious: Yes (Death, Other)
  Sender: FDA-Public Use
  Company Number: PHHY2011JP90775

PATIENT
  Age: 41 Year
  Sex: Female

DRUGS (4)
  1. GANCICLOVIR [Concomitant]
     Indication: CYTOMEGALOVIRUS TEST POSITIVE
  2. CYCLOSPORINE [Suspect]
     Indication: APLASIA PURE RED CELL
     Dosage: UNK UKN, UNK
  3. PREDNISOLONE [Concomitant]
     Indication: APLASIA PURE RED CELL
     Dosage: UNK UKN, UNK
  4. GANCICLOVIR [Concomitant]
     Indication: CYTOMEGALOVIRUS HEPATITIS
     Dosage: UNK UKN, UNK

REACTIONS (4)
  - CYTOMEGALOVIRUS TEST POSITIVE [None]
  - CARDIAC ARREST [None]
  - ASPERGILLOSIS [None]
  - BRAIN ABSCESS [None]
